FAERS Safety Report 6712286-9 (Version None)
Quarter: 2010Q2

REPORT INFORMATION
  Report Type: 
  Country: None (occurrence: None)
  Receive Date: 20100505
  Receipt Date: 20100421
  Transmission Date: 20101027
  Serious: Yes (Life-Threatening)
  Sender: FDA-Public Use
  Company Number: IT-MYLANLABS-2010S1006875

PATIENT
  Age: 30 Year
  Sex: Female

DRUGS (1)
  1. LORAZEPAM [Suspect]
     Indication: DRUG USE FOR UNKNOWN INDICATION

REACTIONS (4)
  - COMA [None]
  - INTENTIONAL SELF-INJURY [None]
  - TACHYCARDIA [None]
  - VOMITING [None]
